FAERS Safety Report 7122771-6 (Version None)
Quarter: 2010Q4

REPORT INFORMATION
  Report Type: 
  Country: None (occurrence: None)
  Receive Date: 20101124
  Receipt Date: 20101119
  Transmission Date: 20110411
  Serious: Yes (Hospitalization, Disabling)
  Sender: FDA-Public Use
  Company Number: BR-B.I. PHARMACEUTICALS,INC./RIDGEFIELD-2010-BR-02714BR

PATIENT
  Sex: Male

DRUGS (5)
  1. SPIRIVA RESPIMAT [Suspect]
     Indication: CHRONIC OBSTRUCTIVE PULMONARY DISEASE
     Dosage: 5 MCG
     Route: 055
     Dates: start: 20100701
  2. ALENIA [Concomitant]
     Indication: CHRONIC OBSTRUCTIVE PULMONARY DISEASE
  3. METFORMIN [Concomitant]
     Indication: DIABETES MELLITUS
  4. GLYBURIDE [Concomitant]
     Indication: DIABETES MELLITUS
  5. DIGOXIN [Concomitant]
     Indication: ARRHYTHMIA

REACTIONS (1)
  - DYSPNOEA [None]
